FAERS Safety Report 6229036-5 (Version None)
Quarter: 2009Q2

REPORT INFORMATION
  Report Type: 
  Country: None (occurrence: None)
  Receive Date: 20090615
  Receipt Date: 20090605
  Transmission Date: 20091009
  Serious: Yes (Hospitalization)
  Sender: FDA-Public Use
  Company Number: US-BIOGENIDEC-2009BI015161

PATIENT
  Age: 50 Year
  Sex: Male
  Weight: 72 kg

DRUGS (13)
  1. AVONEX [Suspect]
     Indication: MULTIPLE SCLEROSIS
     Route: 030
     Dates: start: 20040621
  2. GLEEVEC [Concomitant]
     Indication: GASTROINTESTINAL STROMAL TUMOUR
     Route: 048
     Dates: start: 20090401
  3. GABAPENTIN [Concomitant]
     Route: 048
  4. LOPRESSOR [Concomitant]
     Route: 048
  5. WELLBUTRIN XL [Concomitant]
     Route: 048
  6. RISPERIDONE [Concomitant]
     Route: 048
  7. OXYBUTYNIN CHLORIDE [Concomitant]
     Route: 048
  8. ZOCOR [Concomitant]
     Route: 048
  9. LAMICTAL [Concomitant]
     Route: 048
  10. VICODIN [Concomitant]
     Route: 048
  11. ATIVAN [Concomitant]
     Route: 048
  12. MORPHINE SULFATE [Concomitant]
     Route: 048
  13. TRAZODONE HCL [Concomitant]
     Route: 048

REACTIONS (5)
  - BIPOLAR DISORDER [None]
  - ESSENTIAL HYPERTENSION [None]
  - GASTROINTESTINAL HAEMORRHAGE [None]
  - GASTROINTESTINAL STROMAL TUMOUR [None]
  - HYPERCHOLESTEROLAEMIA [None]
